FAERS Safety Report 7868313-9 (Version None)
Quarter: 2011Q4

REPORT INFORMATION
  Report Type: 
  Country: None (occurrence: None)
  Receive Date: 20111028
  Receipt Date: 20101213
  Transmission Date: 20120403
  Serious: No
  Sender: FDA-Public Use
  Company Number: US-AMGEN-USASP2010009140

PATIENT
  Sex: Male

DRUGS (1)
  1. ENBREL [Suspect]
     Indication: PSORIASIS
     Dosage: 50 MG, QWK
     Dates: start: 20100401

REACTIONS (6)
  - INJECTION SITE ERYTHEMA [None]
  - ARTHROPOD BITE [None]
  - INJECTION SITE PRURITUS [None]
  - INJECTION SITE RASH [None]
  - IMPAIRED HEALING [None]
  - INJECTION SITE SWELLING [None]
